FAERS Safety Report 9614691 (Version 2)
Quarter: 2013Q4

REPORT INFORMATION
  Report Type: Spontaneous
  Country: US (occurrence: US)
  Receive Date: 20131011
  Receipt Date: 20131113
  Transmission Date: 20140711
  Serious: Yes (Hospitalization, Other)
  Sender: FDA-Public Use
  Company Number: US-BAYER-2013-122646

PATIENT
  Age: 36 Year
  Sex: Female
  Weight: 63.49 kg

DRUGS (7)
  1. MIRENA [Suspect]
     Indication: CONTRACEPTION
     Dosage: 20 MCG/24HR, CONT
     Route: 015
     Dates: start: 20100521, end: 20111021
  2. MIRENA [Suspect]
     Indication: MENORRHAGIA
     Dosage: 20 MCG/24HR, CONT
     Route: 015
     Dates: start: 2004, end: 2008
  3. MIRENA [Suspect]
     Indication: CONTRACEPTION
     Dosage: 20 MCG/24HR, CONT
     Route: 015
     Dates: start: 2008, end: 2009
  4. LEXAPRO [Concomitant]
     Indication: DEPRESSION
     Dosage: UNK
  5. LEXAPRO [Concomitant]
     Indication: ANXIETY
  6. FLAGYL [Concomitant]
     Dosage: 500 BID 7 DAYS
     Dates: start: 20110919
  7. ZOLOFT [Concomitant]
     Dosage: UNK

REACTIONS (15)
  - Uterine perforation [None]
  - Genital haemorrhage [None]
  - Pelvic pain [None]
  - Abdominal pain lower [None]
  - Emotional distress [None]
  - Injury [None]
  - Internal injury [None]
  - Hormone level abnormal [None]
  - Mood swings [None]
  - Depression [None]
  - Anxiety [None]
  - Fear [None]
  - Medical device discomfort [None]
  - Depressed mood [None]
  - Irritability [None]
